FAERS Safety Report 8366545-7 (Version None)
Quarter: 2012Q2

REPORT INFORMATION
  Report Type: 
  Country: None (occurrence: None)
  Receive Date: 20120517
  Receipt Date: 20120509
  Transmission Date: 20120825
  Serious: Yes (Hospitalization, Other)
  Sender: FDA-Public Use
  Company Number: JP-US-EMD SERONO, INC.-7131423

PATIENT
  Sex: Female
  Weight: 55 kg

DRUGS (5)
  1. GONAL-F [Suspect]
     Indication: ANOVULATORY CYCLE
     Route: 058
     Dates: start: 20111127, end: 20111201
  2. GONAL-F [Suspect]
     Route: 058
     Dates: start: 20111202, end: 20111207
  3. GONAL-F [Suspect]
     Indication: OVULATION INDUCTION
     Route: 058
     Dates: start: 20111031, end: 20111109
  4. CHORIONIC GONADOTROPIN [Concomitant]
     Indication: ANOVULATORY CYCLE
  5. CHORIONIC GONADOTROPIN [Concomitant]
     Indication: OVULATION INDUCTION
     Dates: start: 20111208, end: 20111208

REACTIONS (3)
  - ABORTION [None]
  - TWIN PREGNANCY [None]
  - OVARIAN HYPERSTIMULATION SYNDROME [None]
